FAERS Safety Report 16254995 (Version 1)
Quarter: 2019Q2

REPORT INFORMATION
  Report Type: Spontaneous
  Country: US (occurrence: US)
  Receive Date: 20190429
  Receipt Date: 20190429
  Transmission Date: 20190711
  Serious: Yes (Disabling)
  Sender: FDA-Public Use
  Company Number: None

PATIENT
  Age: 50 Year
  Sex: Female
  Weight: 72 kg

DRUGS (7)
  1. MAGNESIUM [Concomitant]
     Active Substance: MAGNESIUM
  2. FUIROCET [Concomitant]
  3. MULTIVITAMIN [Concomitant]
     Active Substance: VITAMINS
  4. ZOFRAN [Concomitant]
     Active Substance: ONDANSETRON HYDROCHLORIDE
  5. ZYRTEC [Concomitant]
     Active Substance: CETIRIZINE HYDROCHLORIDE
  6. FERROUS SULFATE. [Concomitant]
     Active Substance: FERROUS SULFATE
  7. OLMESARTAN MEDOXOMIL TABLETS [Suspect]
     Active Substance: OLMESARTAN MEDOXOMIL
     Indication: HYPERTENSION
     Dosage: ?          QUANTITY:1 TABLET(S);??
     Route: 048
     Dates: start: 20190416, end: 20190425

REACTIONS (11)
  - Chest pain [None]
  - Dizziness [None]
  - Blood pressure fluctuation [None]
  - Fear of death [None]
  - Nausea [None]
  - Diarrhoea [None]
  - Headache [None]
  - Vertigo [None]
  - Vision blurred [None]
  - Chest discomfort [None]
  - Feeling abnormal [None]

NARRATIVE: CASE EVENT DATE: 20190421
